FAERS Safety Report 5158157-3 (Version None)
Quarter: 2006Q4

REPORT INFORMATION
  Report Type: 
  Country: None (occurrence: None)
  Receive Date: 20061120
  Receipt Date: 20061120
  Transmission Date: 20070319
  Serious: Yes (Other)
  Sender: FDA-Public Use
  Company Number: None

PATIENT
  Age: 36 Year
  Sex: Female
  Weight: 81.1939 kg

DRUGS (3)
  1. YASMIN [Suspect]
     Indication: ANXIETY
     Dosage: 3.0 MG OF DROSPIREN 1 PER DAY
     Route: 048
     Dates: start: 20040115, end: 20060820
  2. YASMIN [Suspect]
  3. YASMIN [Concomitant]

REACTIONS (13)
  - BLOOD POTASSIUM INCREASED [None]
  - CARDIAC MURMUR [None]
  - CHEST DISCOMFORT [None]
  - CHEST PAIN [None]
  - EAR DISCOMFORT [None]
  - FATIGUE [None]
  - FEELING ABNORMAL [None]
  - HEART RATE DECREASED [None]
  - INNER EAR DISORDER [None]
  - PARALYSIS [None]
  - STRESS [None]
  - TINNITUS [None]
  - TYMPANIC MEMBRANE DISORDER [None]
